FAERS Safety Report 15358286 (Version 1)
Quarter: 2018Q3

REPORT INFORMATION
  Report Type: Spontaneous
  Country: US (occurrence: US)
  Receive Date: 20180906
  Receipt Date: 20180906
  Transmission Date: 20181010
  Serious: No
  Sender: FDA-Public Use
  Company Number: US-PERRIGO-17US031788

PATIENT
  Age: 60 Year
  Sex: Female
  Weight: 83.9 kg

DRUGS (2)
  1. EVAMIST [Suspect]
     Active Substance: ESTRADIOL
     Indication: HORMONE LEVEL ABNORMAL
     Dosage: 3.06 MG, QD
     Route: 062
     Dates: start: 20171101, end: 20171219
  2. EVAMIST [Suspect]
     Active Substance: ESTRADIOL
     Dosage: 1.53 MG, SINGLE
     Route: 062
     Dates: start: 20171220, end: 20171220

REACTIONS (1)
  - Underdose [Recovered/Resolved]

NARRATIVE: CASE EVENT DATE: 20171220
